FAERS Safety Report 4732447-8 (Version None)
Quarter: 2005Q3

REPORT INFORMATION
  Report Type: 
  Country: None (occurrence: None)
  Receive Date: 20050801
  Receipt Date: 20050725
  Transmission Date: 20060218
  Serious: Yes (Hospitalization, Other)
  Sender: FDA-Public Use
  Company Number: HQWYE152823JUL03

PATIENT
  Age: 69 Year
  Sex: Male
  Weight: 167.5 kg

DRUGS (19)
  1. MYLOTARG [Suspect]
     Indication: ACUTE MYELOID LEUKAEMIA
     Dosage: 2 MG/M^2 1X PER 1 DAY, INTRAVENOUS
     Route: 042
     Dates: start: 20030716, end: 20030716
  2. MULTIVITAMINS (ASCORBIC ACID/ERGOCALCIFEROL/FOLIC ACID/NICOTINAMIDE/PA [Concomitant]
  3. CYCLOSPORINE [Concomitant]
  4. MYCOPHENOLATE MOFETIL (MYCOPHENOLATE MOFETIL) [Concomitant]
  5. PREDNISONE [Concomitant]
  6. BECLOMETHASONE DIPROPIONATE [Concomitant]
  7. BACTRIM [Concomitant]
  8. VALTREX [Concomitant]
  9. VANCOMYCIN [Concomitant]
  10. HYTRIN [Concomitant]
  11. ATENOLOL [Concomitant]
  12. ASPIRIN [Concomitant]
  13. DILTIAZEM [Concomitant]
  14. LASIX [Concomitant]
  15. K-DUR 10 [Concomitant]
  16. MAGNESIUM (MAGNESIUM) [Concomitant]
  17. TUMS (CALCIUM CARBONATE/MAGNESIUM CARBONATE/MAGNESIUM TRISILICATE) [Concomitant]
  18. PROTONIX [Concomitant]
  19. ATIVAN [Concomitant]

REACTIONS (2)
  - ARRHYTHMIA [None]
  - ATRIAL TACHYCARDIA [None]
